FAERS Safety Report 4619488-6 (Version None)
Quarter: 2005Q1

REPORT INFORMATION
  Report Type: 
  Country: None (occurrence: None)
  Receive Date: 20050325
  Receipt Date: 20050316
  Transmission Date: 20050727
  Serious: Yes (Other)
  Sender: FDA-Public Use
  Company Number: US-JNJFOC-20050206138

PATIENT
  Age: 66 Year
  Sex: Male
  Weight: 77.11 kg

DRUGS (8)
  1. ULTRAM [Suspect]
     Indication: BACK PAIN
     Route: 049
     Dates: start: 19920301
  2. PAXIL [Concomitant]
  3. DEPAKOTE [Concomitant]
  4. NEURONTIN [Concomitant]
  5. BACLOFEN [Concomitant]
  6. ALKA SELTZER [Concomitant]
  7. ALKA SELTZER [Concomitant]
  8. ALKA SELTZER [Concomitant]

REACTIONS (5)
  - CONVULSION [None]
  - INSOMNIA [None]
  - NERVE COMPRESSION [None]
  - PAIN [None]
  - SPINAL LAMINECTOMY [None]
